FAERS Safety Report 21309959 (Version 4)
Quarter: 2022Q4

REPORT INFORMATION
  Report Type: Report from Study
  Country: BE (occurrence: BE)
  Receive Date: 20220909
  Receipt Date: 20221215
  Transmission Date: 20230112
  Serious: Yes (Hospitalization, Other)
  Sender: FDA-Public Use
  Company Number: BE-BAYER-2022P007881

PATIENT
  Age: 74 Year
  Sex: Female
  Weight: 60 kg

DRUGS (53)
  1. RIVAROXABAN [Suspect]
     Active Substance: RIVAROXABAN
     Indication: Coronary artery disease
     Dosage: 2.5 MG, BID
     Route: 048
     Dates: start: 20200811, end: 20220715
  2. RIVAROXABAN [Suspect]
     Active Substance: RIVAROXABAN
     Indication: Peripheral arterial occlusive disease
     Route: 048
  3. RIVAROXABAN [Suspect]
     Active Substance: RIVAROXABAN
     Indication: Cardiovascular event prophylaxis
     Route: 048
  4. ASPIRIN [Suspect]
     Active Substance: ASPIRIN
     Indication: Coronary artery disease
     Dosage: 80 MG, QD
     Route: 065
     Dates: start: 20130827
  5. ASPIRIN [Suspect]
     Active Substance: ASPIRIN
     Indication: Peripheral arterial occlusive disease
  6. ASPIRIN [Suspect]
     Active Substance: ASPIRIN
     Indication: Cardiovascular event prophylaxis
  7. CLOPIDOGREL [Concomitant]
     Active Substance: CLOPIDOGREL BISULFATE
     Dosage: 75 MG, QD
     Dates: start: 20120214, end: 20200806
  8. CLOPIDOGREL [Concomitant]
     Active Substance: CLOPIDOGREL BISULFATE
     Dosage: 600 MG, QD
     Dates: start: 20220715, end: 20220715
  9. CLOPIDOGREL [Concomitant]
     Active Substance: CLOPIDOGREL BISULFATE
     Dosage: 75 MG, QD
     Dates: start: 20220716
  10. CARVEDILOL [Concomitant]
     Active Substance: CARVEDILOL
     Dosage: 12.5 MG, BID
     Dates: start: 20081120, end: 20220716
  11. SPIRONOLACTONE [Concomitant]
     Active Substance: SPIRONOLACTONE
     Dosage: 25 MG, QD
     Dates: start: 20080703, end: 20220718
  12. VALSARTAN [Concomitant]
     Active Substance: VALSARTAN
     Dosage: 40 MG, BID
     Dates: start: 20081120, end: 20220717
  13. ROSUVASTATIN [Concomitant]
     Active Substance: ROSUVASTATIN
     Dosage: 20 MG, QD
     Dates: start: 20190919
  14. LASIX [Concomitant]
     Active Substance: FUROSEMIDE
     Dosage: 40 MG, QD
     Dates: start: 20170914, end: 20210401
  15. FUROSEMIDE [Concomitant]
     Active Substance: FUROSEMIDE
     Dosage: 20 MG, QD
     Dates: start: 20210402, end: 20220718
  16. DAPAGLIFLOZIN [Concomitant]
     Active Substance: DAPAGLIFLOZIN
     Dosage: 10 MG, QD
     Dates: start: 20210402, end: 20220810
  17. DAPAGLIFLOZIN [Concomitant]
     Active Substance: DAPAGLIFLOZIN
     Dosage: 10 MG, QD
     Dates: start: 20220903
  18. CORDARONE [Concomitant]
     Active Substance: AMIODARONE HYDROCHLORIDE
     Dosage: 400 MG, QD
     Dates: start: 20220715, end: 20220715
  19. CORDARONE [Concomitant]
     Active Substance: AMIODARONE HYDROCHLORIDE
     Dosage: 300 MG, QD
     Dates: start: 20220715, end: 20220715
  20. CORDARONE [Concomitant]
     Active Substance: AMIODARONE HYDROCHLORIDE
     Dosage: 900 MG
     Dates: start: 20220716, end: 20220725
  21. CORDARONE [Concomitant]
     Active Substance: AMIODARONE HYDROCHLORIDE
     Dosage: 200 MG
     Dates: start: 20220725, end: 20220808
  22. CORDARONE [Concomitant]
     Active Substance: AMIODARONE HYDROCHLORIDE
     Dosage: 200 MG, BID
     Dates: start: 20220809, end: 20220814
  23. CORDARONE [Concomitant]
     Active Substance: AMIODARONE HYDROCHLORIDE
     Dosage: 200 MG
     Dates: start: 20220814
  24. NADROPARIN [Concomitant]
     Active Substance: NADROPARIN
     Dosage: 0.3 ML, BID
     Dates: start: 20220715, end: 20220725
  25. NADROPARIN [Concomitant]
     Active Substance: NADROPARIN
     Dosage: 0.3 ML, QD
     Dates: start: 20220726, end: 20220827
  26. NADROPARIN [Concomitant]
     Active Substance: NADROPARIN
     Dosage: 0.3 ML, QD
     Dates: start: 20220907
  27. CEFTRIAXONE [Concomitant]
     Active Substance: CEFTRIAXONE
     Dosage: 2 G, QD
     Dates: start: 20220717, end: 20220808
  28. DOBUTAMINE [Concomitant]
     Active Substance: DOBUTAMINE HYDROCHLORIDE
     Dosage: 250 MG, PRN
     Dates: start: 20220718, end: 20220719
  29. NOREPINEPHRINE [Concomitant]
     Active Substance: NOREPINEPHRINE
     Dosage: 16000 UG, PRN
     Dates: start: 20220717, end: 20220720
  30. NOREPINEPHRINE [Concomitant]
     Active Substance: NOREPINEPHRINE
     Dosage: UNK
     Dates: start: 20220905, end: 20220908
  31. ACETYLCYSTEINE [Concomitant]
     Active Substance: ACETYLCYSTEINE
     Dosage: 600 MG, QD
     Dates: start: 20220716, end: 20220814
  32. ACETYLCYSTEINE [Concomitant]
     Active Substance: ACETYLCYSTEINE
     Dosage: 200 MG QD
     Dates: start: 20220815, end: 20220908
  33. ACETYLCYSTEINE [Concomitant]
     Active Substance: ACETYLCYSTEINE
     Dosage: 600 MG, QD
     Dates: start: 20220909
  34. BISOPROLOL [Concomitant]
     Active Substance: BISOPROLOL
     Dosage: 1.25 MG, QD
     Dates: start: 20220729, end: 20220803
  35. BUMETANIDE [Concomitant]
     Active Substance: BUMETANIDE
     Dosage: 1 MG, PRN
     Dates: start: 20220803
  36. CARVEDILOL [Concomitant]
     Active Substance: CARVEDILOL
     Dosage: 3.125 MG, BID
     Dates: start: 20220804, end: 20220808
  37. CARVEDILOL [Concomitant]
     Active Substance: CARVEDILOL
     Dosage: 6.25 MG
     Dates: start: 20220809, end: 20220810
  38. CARVEDILOL [Concomitant]
     Active Substance: CARVEDILOL
     Dosage: 6.25 MG, TID
     Dates: start: 20220810, end: 20220814
  39. CARVEDILOL [Concomitant]
     Active Substance: CARVEDILOL
     Dosage: 6.25 MG, BID
     Dates: start: 20220814, end: 20220905
  40. CARVEDILOL [Concomitant]
     Active Substance: CARVEDILOL
     Dosage: 6.25 MG, BID
     Dates: start: 20220908
  41. DIFLUCAN [Concomitant]
     Active Substance: FLUCONAZOLE
     Dosage: 100 MG, BID
     Dates: start: 20220730, end: 20220807
  42. DIFLUCAN [Concomitant]
     Active Substance: FLUCONAZOLE
     Dosage: 50 MG, QD
     Dates: start: 20220826, end: 20220830
  43. DIFLUCAN [Concomitant]
     Active Substance: FLUCONAZOLE
     Dosage: 150 MG, QD
     Dates: start: 20220922
  44. ENTRESTO [Concomitant]
     Active Substance: SACUBITRIL\VALSARTAN
     Dosage: 1 DF, BID
     Dates: start: 20220725, end: 20220905
  45. ENTRESTO [Concomitant]
     Active Substance: SACUBITRIL\VALSARTAN
     Dosage: 1 DF, BID
     Dates: start: 20220909
  46. BACTRIM [Concomitant]
     Active Substance: SULFAMETHOXAZOLE\TRIMETHOPRIM
     Dosage: 1 DF, BID
     Dates: start: 20220731, end: 20220807
  47. ESOMEPRAZOLE SODIUM [Concomitant]
     Active Substance: ESOMEPRAZOLE SODIUM
     Dosage: 40 MG, QD
     Dates: start: 20220718
  48. ALDACTONE [Concomitant]
     Active Substance: SPIRONOLACTONE
     Dosage: 25 MG, QD
     Dates: start: 20220723, end: 20220905
  49. ALDACTONE [Concomitant]
     Active Substance: SPIRONOLACTONE
     Dosage: 25 MG, QD
     Dates: start: 20220909
  50. MEXILETINE [Concomitant]
     Active Substance: MEXILETINE
     Dosage: 200 MG, QD
     Dates: start: 20220812
  51. JARDIANCE [Concomitant]
     Active Substance: EMPAGLIFLOZIN
     Dosage: 10 MG, QD
     Dates: start: 20220810, end: 20220902
  52. ZINACEF [Concomitant]
     Active Substance: CEFUROXIME SODIUM
     Dosage: 1.5 G, TID
     Dates: start: 20220907, end: 20220912
  53. CIPROFLOXACIN [Concomitant]
     Active Substance: CIPROFLOXACIN
     Dosage: 400 MG, BID
     Dates: start: 20220912, end: 20220916

REACTIONS (4)
  - Ventricular tachycardia [Recovered/Resolved]
  - Chest pain [Recovered/Resolved]
  - Aortic aneurysm [Not Recovered/Not Resolved]
  - Hypovolaemic shock [Recovered/Resolved]

NARRATIVE: CASE EVENT DATE: 20220715
